FAERS Safety Report 7237399-7 (Version None)
Quarter: 2011Q1

REPORT INFORMATION
  Report Type: 
  Country: None (occurrence: None)
  Receive Date: 20110121
  Receipt Date: 20110112
  Transmission Date: 20110831
  Serious: Yes (Other)
  Sender: FDA-Public Use
  Company Number: US-PFIZER INC-2011008060

PATIENT
  Sex: Male

DRUGS (1)
  1. ADVIL [Suspect]
     Dosage: UNK
     Dates: start: 19910101

REACTIONS (4)
  - ACCIDENTAL OVERDOSE [None]
  - GAZE PALSY [None]
  - TINNITUS [None]
  - ALTERED STATE OF CONSCIOUSNESS [None]
